FAERS Safety Report 8414315-3 (Version None)
Quarter: 2012Q2

REPORT INFORMATION
  Report Type: 
  Country: None (occurrence: None)
  Receive Date: 20120605
  Receipt Date: 20120523
  Transmission Date: 20120825
  Serious: Yes (Other)
  Sender: FDA-Public Use
  Company Number: AU-MYLANLABS-2012S1010700

PATIENT
  Age: 51 Year
  Sex: Female

DRUGS (5)
  1. ENALAPRIL MALEATE [Concomitant]
     Indication: HYPERTENSION
     Dosage: 10MG
     Route: 065
  2. MIRTAZAPINE [Concomitant]
     Dosage: 45MG
     Route: 065
  3. CLOZAPINE [Suspect]
     Dosage: 925MG
     Route: 065
  4. LAMOTRIGINE [Concomitant]
     Dosage: 125MG
     Route: 065
  5. ZOPICLONE [Concomitant]
     Dosage: 7.5MG
     Route: 065

REACTIONS (6)
  - PSEUDOPHAEOCHROMOCYTOMA [None]
  - TACHYCARDIA [None]
  - DIZZINESS [None]
  - HYPERTENSIVE CRISIS [None]
  - ANXIETY [None]
  - WEIGHT DECREASED [None]
